FAERS Safety Report 18203251 (Version 2)
Quarter: 2020Q3

REPORT INFORMATION
  Report Type: Spontaneous
  Country: RU (occurrence: RU)
  Receive Date: 20200827
  Receipt Date: 20200903
  Transmission Date: 20201103
  Serious: Yes (Other)
  Sender: FDA-Public Use
  Company Number: RU-NOVOPROD-737935

PATIENT
  Age: 12 Year
  Sex: Female
  Weight: 45 kg

DRUGS (4)
  1. TRESIBA [Concomitant]
     Active Substance: INSULIN DEGLUDEC
     Indication: TYPE 1 DIABETES MELLITUS
     Dosage: 9 IU, QD
     Route: 058
     Dates: start: 202005
  2. NOVORAPID [Suspect]
     Active Substance: INSULIN ASPART
     Indication: TYPE 1 DIABETES MELLITUS
     Dosage: 25 IU, QD
     Route: 058
     Dates: start: 202005
  3. NOVORAPID [Suspect]
     Active Substance: INSULIN ASPART
     Dosage: 25 IU, QD (NEW SAMPLE)
     Route: 058
     Dates: start: 20200629
  4. IODOMARIN [Concomitant]
     Active Substance: POTASSIUM IODIDE
     Indication: PROPHYLAXIS
     Dosage: 100 ?G, QD
     Route: 048

REACTIONS (4)
  - Device malfunction [Unknown]
  - Hypoglycaemia [Recovered/Resolved]
  - Device failure [Unknown]
  - Hyperglycaemia [Recovered/Resolved]

NARRATIVE: CASE EVENT DATE: 20200624
